FAERS Safety Report 20902827 (Version 1)
Quarter: 2022Q2

REPORT INFORMATION
  Report Type: Spontaneous
  Country: US (occurrence: US)
  Receive Date: 20220601
  Receipt Date: 20220601
  Transmission Date: 20220721
  Serious: Yes (Other)
  Sender: FDA-Public Use
  Company Number: US-PFIZER INC-202200292398

PATIENT
  Age: 46 Year
  Sex: Female

DRUGS (1)
  1. XELJANZ XR [Suspect]
     Active Substance: TOFACITINIB CITRATE
     Dosage: 11 MG, ALTERNATE DAY

REACTIONS (6)
  - Herpes zoster [Unknown]
  - Post herpetic neuralgia [Unknown]
  - Gait disturbance [Unknown]
  - Synovial rupture [Unknown]
  - Synovial cyst [Unknown]
  - Intentional product misuse [Unknown]
